FAERS Safety Report 12290345 (Version 1)
Quarter: 2016Q2

REPORT INFORMATION
  Report Type: Spontaneous
  Country: US (occurrence: US)
  Receive Date: 20160421
  Receipt Date: 20160421
  Transmission Date: 20160815
  Serious: Yes (Other)
  Sender: FDA-Public Use
  Company Number: US-PFIZER INC-2016217731

PATIENT
  Age: 72 Year
  Sex: Female

DRUGS (1)
  1. LYRICA [Suspect]
     Active Substance: PREGABALIN
     Dosage: UNK

REACTIONS (12)
  - Myocardial infarction [Unknown]
  - Dehydration [Unknown]
  - Gout [Unknown]
  - Chronic obstructive pulmonary disease [Unknown]
  - Pancreatitis [Unknown]
  - Arthritis [Unknown]
  - Blood cholesterol increased [Unknown]
  - Swelling [Unknown]
  - Fall [Unknown]
  - Kidney infection [Unknown]
  - Sepsis [Unknown]
  - Skin abrasion [Unknown]
